APPROVED DRUG PRODUCT: LEVOTHYROXINE SODIUM
Active Ingredient: LEVOTHYROXINE SODIUM
Strength: 100MCG/VIAL
Dosage Form/Route: POWDER;INTRAVENOUS
Application: A216729 | Product #001 | TE Code: AP
Applicant: ONESOURCE SPECIALTY PTE LTD
Approved: Mar 5, 2025 | RLD: No | RS: No | Type: RX